FAERS Safety Report 11126268 (Version 2)
Quarter: 2015Q2

REPORT INFORMATION
  Report Type: Spontaneous
  Country: US (occurrence: US)
  Receive Date: 20150520
  Receipt Date: 20150603
  Transmission Date: 20150821
  Serious: Yes (Other)
  Sender: FDA-Public Use
  Company Number: US-TEVA-562657USA

PATIENT
  Age: 73 Year
  Sex: Female
  Weight: 64.47 kg

DRUGS (9)
  1. VITAMIN D3 [Concomitant]
     Active Substance: CHOLECALCIFEROL
     Indication: VITAMIN SUPPLEMENTATION
     Dosage: 4000 IU (INTERNATIONAL UNIT) DAILY;
  2. MATRIX 500 [Concomitant]
     Indication: DERMATITIS
  3. ATENOLOL. [Suspect]
     Active Substance: ATENOLOL
     Indication: HYPERTENSION
  4. ATENOLOL (ALMATICA) [Suspect]
     Active Substance: ATENOLOL
     Indication: HEART RATE IRREGULAR
     Route: 065
  5. ATENOLOL (ALMATICA) [Suspect]
     Active Substance: ATENOLOL
     Indication: HYPERTENSION
  6. ASPIRIN. [Concomitant]
     Active Substance: ASPIRIN
     Dosage: 81 MILLIGRAM DAILY;
  7. MULTIVITAMIN [Concomitant]
     Active Substance: VITAMINS
     Indication: VITAMIN SUPPLEMENTATION
  8. ATENOLOL. [Suspect]
     Active Substance: ATENOLOL
     Indication: HEART RATE IRREGULAR
     Dates: start: 20150212, end: 20150212
  9. OMEGA 3 [Concomitant]
     Active Substance: OMEGA-3 FATTY ACIDS
     Indication: VITAMIN SUPPLEMENTATION

REACTIONS (16)
  - Loss of consciousness [Recovered/Resolved]
  - Stress [Unknown]
  - Anxiety [Unknown]
  - Dizziness [Recovered/Resolved]
  - Dyspnoea [Recovered/Resolved]
  - Tinnitus [Recovered/Resolved]
  - Headache [Unknown]
  - Flushing [Unknown]
  - Fatigue [Recovered/Resolved]
  - Palpitations [Recovered/Resolved]
  - Hypertension [Recovered/Resolved]
  - Product substitution issue [Unknown]
  - Throat tightness [Recovered/Resolved]
  - Peripheral coldness [Recovered/Resolved]
  - Nausea [Recovered/Resolved]
  - Chest pain [Recovered/Resolved]

NARRATIVE: CASE EVENT DATE: 201502
